FAERS Safety Report 11297007 (Version 1)
Quarter: 2015Q3

REPORT INFORMATION
  Report Type: Spontaneous
  Country: US (occurrence: US)
  Receive Date: 20150722
  Receipt Date: 20150722
  Transmission Date: 20151125
  Serious: No
  Sender: FDA-Public Use
  Company Number: US-ELI_LILLY_AND_COMPANY-US201010004908

PATIENT
  Sex: Male
  Weight: 97.96 kg

DRUGS (13)
  1. PREVACID [Concomitant]
     Active Substance: LANSOPRAZOLE
     Dosage: 15 MG, DAILY (1/D)
  2. ASPIRIN. [Concomitant]
     Active Substance: ASPIRIN
     Dosage: 81 MG, DAILY (1/D)
  3. PREVACID [Concomitant]
     Active Substance: LANSOPRAZOLE
     Dosage: 30 MG, DAILY (1/D)
  4. WELCHOL [Concomitant]
     Active Substance: COLESEVELAM HYDROCHLORIDE
     Dosage: 625 MG, DAILY (1/D)
  5. FLOMAX [Concomitant]
     Active Substance: TAMSULOSIN HYDROCHLORIDE
     Dosage: 0.4 MG, DAILY (1/D)
  6. ACTOS [Concomitant]
     Active Substance: PIOGLITAZONE HYDROCHLORIDE
     Dosage: 15 MG, 2/D
  7. NORVASC [Concomitant]
     Active Substance: AMLODIPINE BESYLATE
     Dosage: 5 MG, DAILY (1/D)
  8. EFFIENT [Suspect]
     Active Substance: PRASUGREL HYDROCHLORIDE
     Indication: PERCUTANEOUS CORONARY INTERVENTION
     Dosage: 10 MG, DAILY (1/D)
  9. WELCHOL [Concomitant]
     Active Substance: COLESEVELAM HYDROCHLORIDE
     Dosage: 625 MG, 2/D
  10. PROAIR HFA [Concomitant]
     Active Substance: ALBUTEROL SULFATE
     Dosage: 108 UG, DAILY (1/D)
  11. AVODART [Concomitant]
     Active Substance: DUTASTERIDE
     Dosage: 0.5 MG, DAILY (1/D)
  12. FLOVENT [Concomitant]
     Active Substance: FLUTICASONE PROPIONATE
     Dosage: 44 UG, DAILY (1/D)
  13. NASAL SPRAY [Concomitant]
     Active Substance: UNSPECIFIED INGREDIENT

REACTIONS (2)
  - Burning sensation [Unknown]
  - Cough [Unknown]
